FAERS Safety Report 9973279 (Version 1)
Quarter: 2014Q1

REPORT INFORMATION
  Report Type: Report from Study
  Country: US (occurrence: US)
  Receive Date: 20140306
  Receipt Date: 20140306
  Transmission Date: 20141002
  Serious: No
  Sender: FDA-Public Use
  Company Number: US-ABBVIE-13P-163-1154691-00

PATIENT
  Age: 52 Year
  Sex: Female

DRUGS (3)
  1. HUMIRA [Suspect]
     Indication: RHEUMATOID ARTHRITIS
     Route: 058
     Dates: start: 20130705, end: 201308
  2. HUMIRA [Suspect]
     Route: 058
     Dates: start: 201309
  3. ESTROVENT [Suspect]
     Indication: PRODUCT USED FOR UNKNOWN INDICATION

REACTIONS (5)
  - Hot flush [Unknown]
  - Abscess [Unknown]
  - Drug ineffective [Unknown]
  - Erythema [Unknown]
  - Feeling hot [Unknown]
